FAERS Safety Report 7969717-6 (Version None)
Quarter: 2011Q4

REPORT INFORMATION
  Report Type: 
  Country: None (occurrence: None)
  Receive Date: 20111212
  Receipt Date: 20111130
  Transmission Date: 20120403
  Serious: Yes (Other)
  Sender: FDA-Public Use
  Company Number: CA-JNJFOC-20111203339

PATIENT
  Sex: Female
  Weight: 55.6 kg

DRUGS (2)
  1. METHOTREXATE [Concomitant]
     Route: 048
  2. REMICADE [Suspect]
     Indication: CROHN'S DISEASE
     Route: 042
     Dates: start: 20090901

REACTIONS (3)
  - ENDOSCOPY [None]
  - RASH PUSTULAR [None]
  - URTICARIA [None]
